FAERS Safety Report 4884312-3 (Version None)
Quarter: 2005Q4

REPORT INFORMATION
  Report Type: 
  Country: None (occurrence: None)
  Receive Date: 20051201
  Receipt Date: 20050829
  Transmission Date: 20060501
  Serious: No
  Sender: FDA-Public Use
  Company Number: 2005PV001688

PATIENT
  Age: 62 Year
  Sex: Female

DRUGS (16)
  1. BYETTA [Suspect]
     Indication: DIABETES MELLITUS NON-INSULIN-DEPENDENT
     Dosage: 5 MCG; BID; SC
     Route: 058
     Dates: start: 20050824
  2. METFORMIN [Concomitant]
  3. ACTOS [Concomitant]
  4. PREVACID [Concomitant]
  5. REGLAN [Concomitant]
  6. PRELEAVE [Concomitant]
  7. HYDROCHLOROTHIAZIDE [Concomitant]
  8. COZAAR [Concomitant]
  9. TRICOR [Concomitant]
  10. ATENOLOL [Concomitant]
  11. ALLEGRA [Concomitant]
  12. ALLEGRA [Concomitant]
  13. CRESTOR [Concomitant]
  14. ASPIRIN [Concomitant]
  15. CYMBALTA [Concomitant]
  16. MULTIVITAMIN [Concomitant]

REACTIONS (1)
  - INJECTION SITE BRUISING [None]
